FAERS Safety Report 20510029 (Version 1)
Quarter: 2022Q1

REPORT INFORMATION
  Report Type: Spontaneous
  Country: US (occurrence: US)
  Receive Date: 20220224
  Receipt Date: 20220224
  Transmission Date: 20220423
  Serious: Yes (Other)
  Sender: FDA-Public Use
  Company Number: US-drreddys-SPO/USA/22/0146948

PATIENT
  Age: 40 Year
  Sex: Female

DRUGS (1)
  1. ZENATANE [Suspect]
     Active Substance: ISOTRETINOIN
     Indication: Product used for unknown indication
     Dosage: RMA ISSUE DATE:07 DECEMBER 2021 12:00:00 AM
     Dates: start: 20211207, end: 20220202

REACTIONS (4)
  - Exposure during pregnancy [Unknown]
  - Dry skin [Unknown]
  - Chapped lips [Unknown]
  - Incorrect dose administered [Unknown]
